FAERS Safety Report 12207253 (Version 3)
Quarter: 2020Q4

REPORT INFORMATION
  Report Type: Spontaneous
  Country: IT (occurrence: IT)
  Receive Date: 20160324
  Receipt Date: 20201016
  Transmission Date: 20210113
  Serious: Yes (Other)
  Sender: FDA-Public Use
  Company Number: IT-TEVA-644561ACC

PATIENT
  Age: 67 Year
  Sex: Female
  Weight: 70 kg

DRUGS (5)
  1. CALCIUM LEVOFOLINATE [Suspect]
     Active Substance: LEVOLEUCOVORIN CALCIUM
     Indication: ADENOCARCINOMA OF COLON
     Dosage: 20 MG/M2 CYCLICAL
     Route: 042
     Dates: start: 20151109
  2. DIBASE - 25.000 UI/2,5 ML SOLUZIONE ORALE [Concomitant]
     Active Substance: CHOLECALCIFEROL
     Indication: OSTEOPETROSIS
     Route: 048
  3. CARDURA [Concomitant]
     Active Substance: DOXAZOSIN MESYLATE
     Indication: HYPERTENSION
     Route: 048
  4. TRIATEC - 5 MG COMPRESSE [Concomitant]
     Active Substance: RAMIPRIL
     Indication: HYPERTENSION
     Route: 048
  5. FLUOROURACILE AHCL - 50 MG/ML SOLUZIONE INIETTABILE O INFUSIONE [Suspect]
     Active Substance: FLUOROURACIL
     Indication: COLON CANCER
     Dosage: 400 MG/M2 CYCLICAL
     Route: 042
     Dates: start: 20151109

REACTIONS (3)
  - Tooth erosion [Recovered/Resolved]
  - Flank pain [Recovered/Resolved]
  - Cataract [Recovered/Resolved]

NARRATIVE: CASE EVENT DATE: 20160229
